FAERS Safety Report 12348181 (Version 2)
Quarter: 2016Q2

REPORT INFORMATION
  Report Type: Report from Study
  Country: GB (occurrence: GB)
  Receive Date: 20160509
  Receipt Date: 20160530
  Transmission Date: 20160815
  Serious: Yes (Death, Hospitalization)
  Sender: FDA-Public Use
  Company Number: PHHO2014GB004077

PATIENT
  Age: 57 Year
  Sex: Male
  Weight: 65.9 kg

DRUGS (3)
  1. LDE 225 [Suspect]
     Active Substance: ERISMODEGIB
     Indication: NEOPLASM
     Dosage: 400 MG, UNK
     Route: 048
     Dates: start: 20140206, end: 20140317
  2. TRIMETHOPRIM. [Concomitant]
     Active Substance: TRIMETHOPRIM
     Indication: URINARY TRACT INFECTION
     Dosage: 200 MG, BID
     Route: 065
     Dates: start: 20140313, end: 20140316
  3. BKM120 [Suspect]
     Active Substance: BUPARLISIB HYDROCHLORIDE
     Indication: NEOPLASM
     Dosage: 80 MG, UNK
     Route: 048
     Dates: start: 20140206, end: 20140317

REACTIONS (4)
  - Gait disturbance [Recovered/Resolved]
  - Blood creatine phosphokinase increased [Not Recovered/Not Resolved]
  - Disease progression [Fatal]
  - Hyponatraemia [Recovered/Resolved]

NARRATIVE: CASE EVENT DATE: 20140220
